FAERS Safety Report 4712606-0 (Version None)
Quarter: 2005Q3

REPORT INFORMATION
  Report Type: 
  Country: None (occurrence: None)
  Receive Date: 20050712
  Receipt Date: 20041217
  Transmission Date: 20060218
  Serious: Yes (Hospitalization, Disabling)
  Sender: FDA-Public Use
  Company Number: NO-MERCK-0412NOR00034

PATIENT
  Age: 64 Year
  Sex: Female

DRUGS (4)
  1. VIOXX [Suspect]
     Indication: NECK PAIN
     Route: 048
     Dates: start: 20010601, end: 20041008
  2. LEVOTHYROXINE SODIUM [Concomitant]
     Indication: HYPOTHYROIDISM
     Route: 065
     Dates: start: 19990401
  3. ESTRADIOL AND NORETHINDRONE ACETATE [Concomitant]
     Route: 065
     Dates: start: 19981101
  4. BUDESONIDE AND FORMOTEROL FUMARATE [Concomitant]
     Indication: ASTHMA
     Route: 065
     Dates: start: 20020601

REACTIONS (3)
  - CEREBRAL INFARCTION [None]
  - DYSARTHRIA [None]
  - MOVEMENT DISORDER [None]
